FAERS Safety Report 8462606-2 (Version None)
Quarter: 2012Q2

REPORT INFORMATION
  Report Type: 
  Country: None (occurrence: None)
  Receive Date: 20120619
  Receipt Date: 20120619
  Transmission Date: 20120825
  Serious: Yes (Hospitalization)
  Sender: FDA-Public Use
  Company Number: None

PATIENT
  Age: 44 Year
  Sex: Male

DRUGS (1)
  1. IBUPROFEN [Suspect]
     Indication: HEADACHE
     Dosage: PO
     Route: 048
     Dates: start: 20120102, end: 20120102

REACTIONS (4)
  - THROAT TIGHTNESS [None]
  - ANAPHYLACTIC REACTION [None]
  - HEARING IMPAIRED [None]
  - DYSPNOEA [None]
